APPROVED DRUG PRODUCT: NITROGLYCERIN
Active Ingredient: NITROGLYCERIN
Strength: 0.4MG/HR
Dosage Form/Route: FILM, EXTENDED RELEASE;TRANSDERMAL
Application: A089885 | Product #001 | TE Code: AB2
Applicant: ZYDUS PHARMACEUTICALS USA INC
Approved: Oct 30, 1998 | RLD: No | RS: No | Type: RX